FAERS Safety Report 6491537-2 (Version None)
Quarter: 2009Q4

REPORT INFORMATION
  Report Type: 
  Country: None (occurrence: None)
  Receive Date: 20091211
  Receipt Date: 20091202
  Transmission Date: 20100525
  Serious: Yes (Death, Hospitalization, Other)
  Sender: FDA-Public Use
  Company Number: GB-GILEAD-2007-0014499

PATIENT
  Age: 25 Year
  Sex: Male

DRUGS (10)
  1. VIREAD [Suspect]
     Indication: HIV INFECTION
     Route: 048
     Dates: start: 20030408, end: 20030417
  2. LAMIVUDINE [Suspect]
     Indication: HIV INFECTION
     Dates: start: 20030408, end: 20030417
  3. NEVIRAPINE [Suspect]
     Indication: HIV INFECTION
     Route: 048
     Dates: start: 20030408, end: 20030417
  4. COMBIVIR [Suspect]
     Indication: HIV INFECTION
     Dates: start: 20030311, end: 20030327
  5. EFAVIRENZ [Suspect]
     Indication: HIV INFECTION
     Dates: start: 20030311, end: 20030327
  6. IBUPROFEN [Suspect]
     Indication: PAIN IN EXTREMITY
  7. CIPROFLOXACIN [Suspect]
     Indication: CHEST DISCOMFORT
  8. CLARITHROMYCIN [Suspect]
     Indication: CHEST DISCOMFORT
  9. SEPTRIN [Suspect]
     Indication: ANTIFUNGAL PROPHYLAXIS
     Route: 048
     Dates: start: 20030408, end: 20030417
  10. LOPERAMIDE HYDROCHLORIDE [Suspect]
     Indication: DIARRHOEA

REACTIONS (8)
  - AGITATION [None]
  - CHOLANGITIS [None]
  - HEPATIC FAILURE [None]
  - HEPATOTOXICITY [None]
  - PYREXIA [None]
  - SEPSIS [None]
  - VANISHING BILE DUCT SYNDROME [None]
  - VOMITING [None]
